FAERS Safety Report 14740356 (Version 2)
Quarter: 2018Q2

REPORT INFORMATION
  Report Type: Report from Study
  Country: US (occurrence: US)
  Receive Date: 20180410
  Receipt Date: 20180509
  Transmission Date: 20180711
  Serious: Yes (Other)
  Sender: FDA-Public Use
  Company Number: PHEH2018US012298

PATIENT
  Sex: Male

DRUGS (1)
  1. ENTRESTO [Suspect]
     Active Substance: SACUBITRIL\VALSARTAN
     Indication: PRODUCT USED FOR UNKNOWN INDICATION
     Route: 048

REACTIONS (7)
  - Dyspnoea [Unknown]
  - Cardiac failure congestive [Recovering/Resolving]
  - Cough [Unknown]
  - Myocardial infarction [Unknown]
  - Condition aggravated [Unknown]
  - Pneumonia [Unknown]
  - Swelling [Unknown]
